FAERS Safety Report 5122819-4 (Version None)
Quarter: 2006Q4

REPORT INFORMATION
  Report Type: 
  Country: None (occurrence: None)
  Receive Date: 20061009
  Receipt Date: 20060925
  Transmission Date: 20070319
  Serious: Yes (Other)
  Sender: FDA-Public Use
  Company Number: PHBS2006NL14662

PATIENT
  Sex: Female
  Weight: 77 kg

DRUGS (9)
  1. DEPAKENE [Concomitant]
     Dosage: 1 DF, QD
     Route: 065
  2. CAMCOLIT [Concomitant]
     Dosage: 400 MG, BID
     Route: 065
  3. CANNABIS [Concomitant]
     Dosage: 1 DF, QD
  4. ZYPREXA [Concomitant]
     Dosage: 5 MG, QD
     Route: 065
  5. ZOPICLON [Concomitant]
     Dosage: 7.5 MG, PRN
  6. VITAMIN B COMPLEX CAP [Concomitant]
     Dosage: 1 DF, QD
     Route: 065
  7. LIORESAL [Suspect]
     Dosage: 5 MG, QD
     Route: 048
     Dates: start: 20060518, end: 20060719
  8. SYMMETREL [Concomitant]
     Dosage: ONCE PER 2 DAYS 100 MG
     Route: 065
  9. LORAZEPAM [Concomitant]
     Dosage: 1 MG, BID

REACTIONS (1)
  - TRISMUS [None]
